FAERS Safety Report 7725832-3 (Version None)
Quarter: 2011Q3

REPORT INFORMATION
  Report Type: 
  Country: None (occurrence: None)
  Receive Date: 20110902
  Receipt Date: 20110826
  Transmission Date: 20111222
  Serious: Yes (Other)
  Sender: FDA-Public Use
  Company Number: US-AMGEN-USASP2011038614

PATIENT
  Age: 65 Year
  Sex: Male
  Weight: 73.923 kg

DRUGS (9)
  1. PROCRIT [Suspect]
     Dosage: 40000 IU, QWK
     Route: 058
     Dates: start: 20110607
  2. ASPIRIN [Concomitant]
     Dosage: 61 MG, UNK
  3. EXJAED [Concomitant]
     Dosage: 500 MG, UNK
  4. LIPITOR [Concomitant]
     Dosage: 20 MG, UNK
  5. DIPHENYLHYDANTOIN [Concomitant]
     Dosage: UNK
     Dates: start: 20100713
  6. PLAVIX [Concomitant]
     Dosage: 75 MG, UNK
  7. PROCRIT [Suspect]
     Indication: MYELODYSPLASTIC SYNDROME
     Dosage: 40000 IU, QWK
     Route: 058
     Dates: start: 20090101, end: 20110719
  8. PROCRIT [Suspect]
     Dosage: 20000 IU, QWK
     Route: 058
     Dates: start: 20110531, end: 20110531
  9. FOLIC ACID [Concomitant]
     Dosage: 1 MG, UNK

REACTIONS (2)
  - HAEMOGLOBIN DECREASED [None]
  - THERAPEUTIC RESPONSE DECREASED [None]
